FAERS Safety Report 18596075 (Version 3)
Quarter: 2021Q2

REPORT INFORMATION
  Report Type: Spontaneous
  Country: US (occurrence: US)
  Receive Date: 20201209
  Receipt Date: 20210413
  Transmission Date: 20210717
  Serious: No
  Sender: FDA-Public Use
  Company Number: US-PFIZER INC-2020481062

PATIENT
  Age: 67 Year
  Sex: Female

DRUGS (20)
  1. PROPANOLOL [PROPRANOLOL] [Concomitant]
     Active Substance: PROPRANOLOL HYDROCHLORIDE
     Indication: DEPRESSION
  2. PROPANOLOL [PROPRANOLOL] [Concomitant]
     Active Substance: PROPRANOLOL HYDROCHLORIDE
     Indication: ANXIETY
  3. BUSPAR [Concomitant]
     Active Substance: BUSPIRONE HYDROCHLORIDE
     Indication: DEPRESSION
  4. EFFEXOR [Concomitant]
     Active Substance: VENLAFAXINE HYDROCHLORIDE
     Indication: ANXIETY
     Dosage: UNK
  5. EFFEXOR [Concomitant]
     Active Substance: VENLAFAXINE HYDROCHLORIDE
     Indication: DEPRESSION
  6. LEVOTHYROXINE. [Concomitant]
     Active Substance: LEVOTHYROXINE
     Indication: THYROID DISORDER
     Dosage: UNK, 1X/DAY (ONE TABLET A DAY)
  7. LINACLOTIDE [Concomitant]
     Active Substance: LINACLOTIDE
     Indication: IRRITABLE BOWEL SYNDROME
     Dosage: 145 UG, 1X/DAY (145 MCG, CAPSULE, ONCE A DAY)
  8. NEXIUM I.V. [Concomitant]
     Active Substance: ESOMEPRAZOLE SODIUM
     Indication: GASTROOESOPHAGEAL REFLUX DISEASE
     Dosage: ONE CAPSULE, 2 TIMES A DAY 30 MINUTES BEFORE EACH MEAL)
  9. FOLIC ACID. [Concomitant]
     Active Substance: FOLIC ACID
     Dosage: 1 MG, 1X/DAY(1MG,ONE TABLET A DAY)
  10. SIMPONI [Concomitant]
     Active Substance: GOLIMUMAB
     Dosage: UNK, MONTHLY
  11. WELLBUTRIN [Concomitant]
     Active Substance: BUPROPION HYDROCHLORIDE
     Indication: DEPRESSION
  12. WELLBUTRIN [Concomitant]
     Active Substance: BUPROPION HYDROCHLORIDE
     Indication: ANXIETY
     Dosage: 150 MG (ONE TABLET), 2X/DAY
  13. BUSPAR [Concomitant]
     Active Substance: BUSPIRONE HYDROCHLORIDE
     Indication: ANXIETY
     Dosage: 10 MG, 2X/DAY (10 MG, ONE TABLET, TWICE A DAY)
  14. VENLAFAXINE [Concomitant]
     Active Substance: VENLAFAXINE HYDROCHLORIDE
     Indication: ANXIETY
     Dosage: UNK
  15. VENLAFAXINE [Concomitant]
     Active Substance: VENLAFAXINE HYDROCHLORIDE
     Indication: DEPRESSION
  16. ESTRING [Suspect]
     Active Substance: ESTRADIOL
     Indication: VULVOVAGINAL DRYNESS
     Dosage: UNK
     Dates: start: 202003
  17. DOMPERIDONE [Concomitant]
     Active Substance: DOMPERIDONE
     Indication: IMPAIRED GASTRIC EMPTYING
     Dosage: 10 MG, 3X/DAY(10 MG, ONE TABLET 3 TIMES A DAY, 15?30 MINUTES BEFORE EACH MEAL)
  18. MELOXICAM. [Concomitant]
     Active Substance: MELOXICAM
     Indication: RHEUMATOID ARTHRITIS
     Dosage: 15 MG, 4X/DAY (15 MG, 1 TABLET, 4 TIMES A DAY)
  19. PROPANOLOL [PROPRANOLOL] [Concomitant]
     Active Substance: PROPRANOLOL HYDROCHLORIDE
     Indication: BLOOD PRESSURE ABNORMAL
     Dosage: 1 CAPSULE, DAILY
  20. MOBIC [Concomitant]
     Active Substance: MELOXICAM
     Dosage: 15 MG, 4X/DAY (15 MG, ONE TABLET, 4 TIMES A DAY)

REACTIONS (13)
  - Medical device site haemorrhage [Unknown]
  - Abdominal distension [Unknown]
  - Dizziness [Unknown]
  - Abdominal discomfort [Unknown]
  - Depression [Unknown]
  - Vomiting [Unknown]
  - Weight fluctuation [Unknown]
  - Weight increased [Unknown]
  - Vaginal haemorrhage [Unknown]
  - Libido decreased [Unknown]
  - Atrophy [Unknown]
  - Nervousness [Unknown]
  - Abdominal pain [Unknown]
